FAERS Safety Report 23178621 (Version 2)
Quarter: 2023Q4

REPORT INFORMATION
  Report Type: Spontaneous
  Country: BG (occurrence: BG)
  Receive Date: 20231113
  Receipt Date: 20231218
  Transmission Date: 20240109
  Serious: Yes (Hospitalization, Other)
  Sender: FDA-Public Use
  Company Number: BG-002147023-NVSC2023BG240057

PATIENT

DRUGS (2)
  1. RUXOLITINIB [Suspect]
     Active Substance: RUXOLITINIB
     Indication: Myelofibrosis
     Dosage: 20 MG, BID (2 X 20 MG)
     Route: 065
  2. RUXOLITINIB [Suspect]
     Active Substance: RUXOLITINIB
     Dosage: 10 MG, BID (2 X 10 MG)
     Route: 065

REACTIONS (7)
  - Liver abscess [Recovering/Resolving]
  - Anaemia [Unknown]
  - Gallbladder empyema [Recovering/Resolving]
  - Haematotoxicity [Recovering/Resolving]
  - Splenic vein thrombosis [Unknown]
  - Portal vein thrombosis [Unknown]
  - Mesenteric vein thrombosis [Unknown]
